FAERS Safety Report 18159280 (Version 1)
Quarter: 2020Q3

REPORT INFORMATION
  Report Type: Report from Study
  Country: CA (occurrence: CA)
  Receive Date: 20200817
  Receipt Date: 20200817
  Transmission Date: 20201103
  Serious: Yes (Other)
  Sender: FDA-Public Use
  Company Number: CA-JNJFOC-20200811616

PATIENT
  Age: 45 Year
  Sex: Female
  Weight: 109.3 kg

DRUGS (1)
  1. REMICADE [Suspect]
     Active Substance: INFLIXIMAB
     Indication: CROHN^S DISEASE
     Route: 042
     Dates: start: 20161209

REACTIONS (2)
  - Staphylococcal infection [Unknown]
  - Folliculitis [Unknown]

NARRATIVE: CASE EVENT DATE: 20200703
